FAERS Safety Report 10306173 (Version 1)
Quarter: 2014Q3

REPORT INFORMATION
  Report Type: Spontaneous
  Country: US (occurrence: US)
  Receive Date: 20140715
  Receipt Date: 20140715
  Transmission Date: 20150326
  Serious: Yes (Hospitalization)
  Sender: FDA-Public Use
  Company Number: US-CUBIST PHARMACEUTICAL, INC.-2014CBST000989

PATIENT

DRUGS (18)
  1. POLYMYXIN                          /00106601/ [Concomitant]
     Indication: DEVICE RELATED INFECTION
     Dosage: UNK UNK, UNK
     Route: 065
  2. CUBICIN [Suspect]
     Active Substance: DAPTOMYCIN
     Indication: OFF LABEL USE
  3. LINEZOLID RICHET [Concomitant]
     Active Substance: LINEZOLID
     Indication: DEVICE RELATED INFECTION
     Dosage: UNK UNK, UNK
     Route: 065
  4. TIGECYCLINE [Concomitant]
     Active Substance: TIGECYCLINE
     Indication: DEVICE RELATED INFECTION
     Dosage: UNK UNK, UNK
     Route: 065
  5. CUBICIN [Suspect]
     Active Substance: DAPTOMYCIN
     Indication: KLEBSIELLA SEPSIS
  6. LINEZOLID RICHET [Concomitant]
     Active Substance: LINEZOLID
     Indication: STAPHYLOCOCCAL SEPSIS
  7. POLYMYXIN                          /00106601/ [Concomitant]
     Indication: STAPHYLOCOCCAL SEPSIS
  8. CUBICIN [Suspect]
     Active Substance: DAPTOMYCIN
     Indication: DEVICE RELATED INFECTION
     Dosage: UNK UNK, UNK
     Route: 065
  9. CUBICIN [Suspect]
     Active Substance: DAPTOMYCIN
     Indication: STAPHYLOCOCCAL SEPSIS
     Dosage: UNK UNK, UNK
     Route: 065
  10. VANCOMYCIN [Concomitant]
     Active Substance: VANCOMYCIN
     Indication: STAPHYLOCOCCAL SEPSIS
  11. LINEZOLID RICHET [Concomitant]
     Active Substance: LINEZOLID
     Indication: KLEBSIELLA SEPSIS
  12. POLYMYXIN                          /00106601/ [Concomitant]
     Indication: KLEBSIELLA SEPSIS
  13. CUBICIN [Suspect]
     Active Substance: DAPTOMYCIN
     Indication: DEVICE RELATED INFECTION
  14. TIGECYCLINE [Concomitant]
     Active Substance: TIGECYCLINE
     Indication: KLEBSIELLA SEPSIS
  15. CUBICIN [Suspect]
     Active Substance: DAPTOMYCIN
     Indication: STAPHYLOCOCCAL INFECTION
  16. TIGECYCLINE [Concomitant]
     Active Substance: TIGECYCLINE
     Indication: STAPHYLOCOCCAL SEPSIS
  17. VANCOMYCIN [Concomitant]
     Active Substance: VANCOMYCIN
     Indication: DEVICE RELATED INFECTION
     Dosage: UNK UNK, UNK
     Route: 065
  18. VANCOMYCIN [Concomitant]
     Active Substance: VANCOMYCIN
     Indication: KLEBSIELLA SEPSIS

REACTIONS (9)
  - Osteomyelitis [Unknown]
  - Enterobacter infection [Unknown]
  - Bone abscess [Unknown]
  - Staphylococcal infection [Unknown]
  - Clostridium bacteraemia [Unknown]
  - Staphylococcal bacteraemia [Unknown]
  - Device related infection [Unknown]
  - Wound infection staphylococcal [Unknown]
  - Antimicrobial susceptibility test resistant [Unknown]
